FAERS Safety Report 18381247 (Version 1)
Quarter: 2020Q4

REPORT INFORMATION
  Report Type: Spontaneous
  Country: CN (occurrence: CN)
  Receive Date: 20201014
  Receipt Date: 20201014
  Transmission Date: 20210114
  Serious: Yes (Congenital Anomaly, Other)
  Sender: FDA-Public Use
  Company Number: CN-LUPIN PHARMACEUTICALS INC.-2020-07291

PATIENT

DRUGS (1)
  1. CEFUROXIME. [Suspect]
     Active Substance: CEFUROXIME
     Indication: LISTERIOSIS
     Dosage: UNK
     Route: 064

REACTIONS (11)
  - Cyanosis [Unknown]
  - Neonatal infection [Unknown]
  - Jaundice neonatal [Unknown]
  - Foetal hypokinesia [Unknown]
  - Atrial septal defect [Unknown]
  - Premature baby [Unknown]
  - Foetal distress syndrome [Unknown]
  - Hydronephrosis [Unknown]
  - Pneumonia [Unknown]
  - Hypocalcaemia [Unknown]
  - Foetal exposure during pregnancy [Unknown]
